FAERS Safety Report 5189022-3 (Version None)
Quarter: 2006Q4

REPORT INFORMATION
  Report Type: 
  Country: None (occurrence: None)
  Receive Date: 20061215
  Receipt Date: 20061204
  Transmission Date: 20070319
  Serious: Yes (Death, Other)
  Sender: FDA-Public Use
  Company Number: 2006151221

PATIENT
  Sex: Male

DRUGS (2)
  1. BEXTRA [Suspect]
     Dosage: ORAL
     Route: 048
     Dates: start: 20030401, end: 20041031
  2. VIOXX [Suspect]
     Dosage: ORAL
     Route: 048
     Dates: start: 20021201, end: 20030401

REACTIONS (2)
  - INJURY [None]
  - MYOCARDIAL INFARCTION [None]
